FAERS Safety Report 4813538-X (Version None)
Quarter: 2005Q4

REPORT INFORMATION
  Report Type: 
  Country: None (occurrence: None)
  Receive Date: 20051028
  Receipt Date: 20050222
  Transmission Date: 20060501
  Serious: No
  Sender: FDA-Public Use
  Company Number: US-GLAXOSMITHKLINE-A0546742A

PATIENT
  Age: 69 Year
  Sex: Female

DRUGS (7)
  1. ADVAIR DISKUS 100/50 [Suspect]
     Indication: EMPHYSEMA
     Dosage: 100MCG TWICE PER DAY
     Route: 055
     Dates: start: 20020101
  2. GLEEVEC [Concomitant]
  3. CYTOMEL [Concomitant]
  4. LEVOXYL [Concomitant]
  5. OGEN [Concomitant]
     Route: 065
  6. VITAMINS [Concomitant]
  7. BEXTRA [Concomitant]

REACTIONS (1)
  - GINGIVAL BLEEDING [None]
